FAERS Safety Report 25436110 (Version 1)
Quarter: 2025Q2

REPORT INFORMATION
  Report Type: Report from Study
  Country: IN (occurrence: IN)
  Receive Date: 20250614
  Receipt Date: 20250614
  Transmission Date: 20250716
  Serious: Yes (Other)
  Sender: ALEXION PHARMACEUTICALS
  Company Number: IN-AstraZeneca-CH-00888960A

PATIENT
  Age: 69 Year
  Weight: 69 kg

DRUGS (1)
  1. OLAPARIB [Suspect]
     Active Substance: OLAPARIB
     Dosage: 150 MILLIGRAM, BID

REACTIONS (6)
  - Abdominal distension [Unknown]
  - Asthenia [Unknown]
  - Glaucoma [Unknown]
  - Dyspepsia [Unknown]
  - Decreased appetite [Unknown]
  - Arthralgia [Unknown]
